FAERS Safety Report 25646389 (Version 1)
Quarter: 2025Q3

REPORT INFORMATION
  Report Type: Spontaneous
  Country: US (occurrence: US)
  Receive Date: 20250805
  Receipt Date: 20250805
  Transmission Date: 20251021
  Serious: No
  Sender: MYLAN
  Company Number: US-MYLANLABS-2025M1062193

PATIENT

DRUGS (4)
  1. TYRVAYA [Suspect]
     Active Substance: VARENICLINE TARTRATE
     Indication: Dry eye
  2. TYRVAYA [Suspect]
     Active Substance: VARENICLINE TARTRATE
     Route: 065
  3. TYRVAYA [Suspect]
     Active Substance: VARENICLINE TARTRATE
     Route: 065
  4. TYRVAYA [Suspect]
     Active Substance: VARENICLINE TARTRATE

REACTIONS (3)
  - Dry eye [Unknown]
  - Drug hypersensitivity [Unknown]
  - Therapeutic product effect decreased [Unknown]

NARRATIVE: CASE EVENT DATE: 20250601
